FAERS Safety Report 7680027-7 (Version None)
Quarter: 2011Q3

REPORT INFORMATION
  Report Type: 
  Country: None (occurrence: None)
  Receive Date: 20110812
  Receipt Date: 20110808
  Transmission Date: 20111222
  Serious: Yes (Other)
  Sender: FDA-Public Use
  Company Number: US-CEPHALON-2010005051

PATIENT
  Sex: Female
  Weight: 65 kg

DRUGS (5)
  1. PROVIGIL [Suspect]
     Indication: ATTENTION DEFICIT/HYPERACTIVITY DISORDER
     Route: 048
     Dates: start: 20090101, end: 20090901
  2. PROVIGIL [Suspect]
     Indication: FATIGUE
     Route: 048
     Dates: start: 20100901
  3. SUBOXONE [Concomitant]
     Dates: start: 20020101
  4. CYMBALTA [Concomitant]
     Dates: start: 20050101
  5. DEPAKOTE [Concomitant]
     Dates: start: 19950101

REACTIONS (7)
  - TRI-IODOTHYRONINE ABNORMAL [None]
  - ALOPECIA [None]
  - SOMNOLENCE [None]
  - THYROID DISORDER [None]
  - THYROXINE ABNORMAL [None]
  - MENSTRUATION IRREGULAR [None]
  - LETHARGY [None]
